FAERS Safety Report 9931639 (Version 1)
Quarter: 2014Q1

REPORT INFORMATION
  Report Type: Spontaneous
  Country: US (occurrence: None)
  Receive Date: 20140227
  Receipt Date: 20140227
  Transmission Date: 20141002
  Serious: No
  Sender: FDA-Public Use
  Company Number: None

PATIENT
  Age: 53 Year
  Sex: Female

DRUGS (1)
  1. TECFIDERA 240 MG BIOGEN IDEC [Suspect]
     Indication: MULTIPLE SCLEROSIS
     Route: 048
     Dates: start: 20130501, end: 20140106

REACTIONS (6)
  - Photosensitivity reaction [None]
  - Hyperhidrosis [None]
  - Flushing [None]
  - Night sweats [None]
  - Skin discolouration [None]
  - Drug ineffective [None]
